FAERS Safety Report 24527057 (Version 1)
Quarter: 2024Q4

REPORT INFORMATION
  Report Type: Spontaneous
  Country: AT (occurrence: AT)
  Receive Date: 20241021
  Receipt Date: 20241021
  Transmission Date: 20250115
  Serious: Yes (Death, Other)
  Sender: TEVA
  Company Number: None

PATIENT
  Age: 83 Year
  Sex: Male

DRUGS (3)
  1. DONEPEZIL [Suspect]
     Active Substance: DONEPEZIL
     Indication: Dementia
     Route: 065
  2. SULFAMETROLE\TRIMETHOPRIM [Suspect]
     Active Substance: SULFAMETROLE\TRIMETHOPRIM
     Indication: Urinary tract infection
     Route: 065
     Dates: start: 202408
  3. ESOMEPRAZOLE [Suspect]
     Active Substance: ESOMEPRAZOLE
     Indication: Product used for unknown indication
     Route: 065

REACTIONS (2)
  - Completed suicide [Fatal]
  - Personality change [Not Recovered/Not Resolved]

NARRATIVE: CASE EVENT DATE: 20240801
